FAERS Safety Report 8886496 (Version 2)
Quarter: 2012Q4

REPORT INFORMATION
  Report Type: 
  Country: US (occurrence: US)
  Receive Date: 20121105
  Receipt Date: 20121128
  Transmission Date: 20130627
  Serious: Yes (Hospitalization, Other)
  Sender: FDA-Public Use
  Company Number: US-JNJFOC-20121101144

PATIENT
  Sex: Male
  Weight: 103.87 kg

DRUGS (4)
  1. XARELTO [Suspect]
     Indication: CEREBROVASCULAR ACCIDENT PROPHYLAXIS
     Route: 048
     Dates: start: 20120717
  2. XARELTO [Suspect]
     Indication: ATRIAL FIBRILLATION
     Route: 048
     Dates: start: 20120717
  3. TYLENOL [Concomitant]
  4. LISINOPRIL [Concomitant]

REACTIONS (2)
  - Epistaxis [Recovered/Resolved]
  - Nasal operation [Unknown]
